FAERS Safety Report 7679149-6 (Version None)
Quarter: 2011Q3

REPORT INFORMATION
  Report Type: 
  Country: None (occurrence: None)
  Receive Date: 20110812
  Receipt Date: 20110729
  Transmission Date: 20111222
  Serious: Yes (Hospitalization, Other)
  Sender: FDA-Public Use
  Company Number: US-ELI_LILLY_AND_COMPANY-US201008008734

PATIENT
  Sex: Female

DRUGS (8)
  1. SIMVASTATIN [Concomitant]
     Indication: BLOOD CHOLESTEROL
     Dosage: 40 MG, DAILY (1/D)
  2. TOPROL-XL [Concomitant]
     Indication: HEART RATE
     Dosage: 50 MG, 2/D
  3. FORTEO [Suspect]
     Indication: OSTEOPOROSIS
     Dosage: 20 UG, UNKNOWN
  4. FORTEO [Suspect]
     Dosage: 20 UG, DAILY (1/D)
  5. MIRAPEX [Concomitant]
     Indication: PARKINSON'S DISEASE
     Dosage: 0.5 MG, DAILY (1/D)
  6. FORTEO [Suspect]
     Dosage: 20 UG, QD
  7. STALEVO 100 [Concomitant]
     Indication: PARKINSON'S DISEASE
     Dosage: 375 MG, UNK
  8. LOTREL [Concomitant]
     Indication: BLOOD PRESSURE
     Dosage: 5 MG, DAILY (1/D)

REACTIONS (8)
  - DIVERTICULITIS [None]
  - INJECTION SITE HAEMATOMA [None]
  - ABDOMINAL PAIN [None]
  - COLOSTOMY CLOSURE [None]
  - TACHYCARDIA [None]
  - INJECTION SITE PAIN [None]
  - PYREXIA [None]
  - GASTROENTERITIS [None]
